FAERS Safety Report 9826048 (Version 2)
Quarter: 2014Q1

REPORT INFORMATION
  Report Type: Report from Study
  Country: DE (occurrence: DE)
  Receive Date: 20140117
  Receipt Date: 20140130
  Transmission Date: 20141002
  Serious: Yes (Hospitalization, Other)
  Sender: FDA-Public Use
  Company Number: DE-ASTELLAS-2014US000431

PATIENT
  Age: 75 Year
  Sex: Female

DRUGS (7)
  1. ERLOTINIB TABLET [Suspect]
     Indication: PANCREATIC CARCINOMA METASTATIC
     Dosage: 100 MG, UID/QD
     Route: 048
     Dates: start: 20131205, end: 20131219
  2. GEMCITABINE [Suspect]
     Indication: PANCREATIC CARCINOMA METASTATIC
     Dosage: ONCE EVERY TWO WEEKS
     Route: 042
     Dates: start: 20131205, end: 20131205
  3. PANTOZOL                           /01263204/ [Concomitant]
     Indication: OESOPHAGITIS
     Dosage: 40 MG, BID
     Route: 048
  4. LISINOPRIL [Concomitant]
     Indication: HYPERTENSION
     Dosage: 10 MG, UID/QD
     Route: 048
  5. ACTRAPID [Concomitant]
     Indication: DIABETES MELLITUS
     Dosage: 10 IU, PRN
     Route: 058
  6. AMIODARONE [Concomitant]
     Indication: ARRHYTHMIA
     Dosage: 200 MG, UID/QD
     Route: 048
  7. BISOPROLOL [Concomitant]
     Indication: CARDIAC FAILURE
     Dosage: 5 MG, UID/QD
     Route: 048

REACTIONS (2)
  - Gallbladder disorder [Unknown]
  - Abdominal pain [Unknown]
